FAERS Safety Report 8306644-9 (Version None)
Quarter: 2012Q2

REPORT INFORMATION
  Report Type: 
  Country: None (occurrence: None)
  Receive Date: 20120424
  Receipt Date: 20120417
  Transmission Date: 20120825
  Serious: Yes (Hospitalization)
  Sender: FDA-Public Use
  Company Number: US-BAYER-2012-038441

PATIENT
  Age: 26 Year
  Sex: Female
  Weight: 63.6 kg

DRUGS (14)
  1. OXYCODONE HCL [Concomitant]
  2. SENNA [Concomitant]
  3. ZITHROMAX [Concomitant]
     Dosage: 250 MG, UNK
  4. MIRALAX [Concomitant]
  5. VALACICLOVIR [Concomitant]
     Dosage: 500 MG, UNK
     Dates: start: 20110520
  6. YAZ [Suspect]
     Route: 048
  7. PERCOCET [Concomitant]
  8. MORPHINE [Concomitant]
     Indication: PAIN
  9. DOCUSATE [Concomitant]
  10. COLACE [Concomitant]
  11. FENTANYL [Concomitant]
  12. XANAX [Concomitant]
  13. DILAUDID [Concomitant]
     Indication: PAIN
  14. ATIVAN [Concomitant]

REACTIONS (2)
  - PELVIC VENOUS THROMBOSIS [None]
  - PULMONARY EMBOLISM [None]
